FAERS Safety Report 10239389 (Version 1)
Quarter: 2014Q2

REPORT INFORMATION
  Report Type: Spontaneous
  Country: US (occurrence: None)
  Receive Date: 20140613
  Receipt Date: 20140613
  Transmission Date: 20141212
  Serious: Yes (Life-Threatening, Hospitalization, Disabling, Other)
  Sender: FDA-Public Use
  Company Number: None

PATIENT
  Age: 66 Year
  Sex: Female
  Weight: 68.04 kg

DRUGS (1)
  1. CLOPIDOGREL [Suspect]
     Indication: COAGULOPATHY
     Route: 048
     Dates: start: 20140318, end: 20140324

REACTIONS (1)
  - Myocardial infarction [None]
